FAERS Safety Report 4340428-1 (Version None)
Quarter: 2004Q2

REPORT INFORMATION
  Report Type: 
  Country: None (occurrence: None)
  Receive Date: 20040414
  Receipt Date: 20040406
  Transmission Date: 20050107
  Serious: Yes (Death, Hospitalization)
  Sender: FDA-Public Use
  Company Number: 04P-163-0246829-00

PATIENT
  Age: 84 Year
  Sex: Female
  Weight: 84.369 kg

DRUGS (15)
  1. HUMIRA [Suspect]
     Indication: RHEUMATOID ARTHRITIS
     Dosage: 40 MG, 1 IN 2 WK, SUBCUTANEOUS
     Route: 058
     Dates: start: 20030731, end: 20031219
  2. PREDNISONE [Concomitant]
  3. METHOTREXATE [Concomitant]
  4. SULFASALAZINE [Concomitant]
  5. HYDROXYCHLOROQUINE PHOSPHATE [Concomitant]
  6. ENALAPRIL MALEATE [Concomitant]
  7. FUROSEMIDE [Concomitant]
  8. POTASSIUM [Concomitant]
  9. LANSOPRAZOLE [Concomitant]
  10. FOLIC ACID [Concomitant]
  11. GLYCERYL TRINITRATE [Concomitant]
  12. LEVOTHYROXINE SODIUM [Concomitant]
  13. ENALAPRIL MALEATE [Concomitant]
  14. ALLOPURINOL [Concomitant]
  15. CALCITONIN-SALMON [Concomitant]

REACTIONS (2)
  - BLOOD CREATININE INCREASED [None]
  - CARDIAC FAILURE CONGESTIVE [None]
